FAERS Safety Report 8461418-3 (Version None)
Quarter: 2012Q2

REPORT INFORMATION
  Report Type: 
  Country: None (occurrence: None)
  Receive Date: 20120323
  Receipt Date: 20111021
  Transmission Date: 20120825
  Serious: Yes (Other)
  Sender: FDA-Public Use
  Company Number: 163-21880-11102161

PATIENT
  Age: 70 Year
  Sex: Male

DRUGS (3)
  1. REVLIMID [Suspect]
     Indication: MULTIPLE MYELOMA
     Dosage: 5 MG, X 21 DAYS, PO ; 5 MG, X 14 DAYS, PO ; 5 MG, QOD X 14 DAYS, PO
     Route: 048
     Dates: start: 20110601, end: 20110701
  2. REVLIMID [Suspect]
     Indication: MULTIPLE MYELOMA
     Dosage: 5 MG, X 21 DAYS, PO ; 5 MG, X 14 DAYS, PO ; 5 MG, QOD X 14 DAYS, PO
     Route: 048
     Dates: start: 20110701, end: 20111001
  3. REVLIMID [Suspect]
     Indication: MULTIPLE MYELOMA
     Dosage: 5 MG, X 21 DAYS, PO ; 5 MG, X 14 DAYS, PO ; 5 MG, QOD X 14 DAYS, PO
     Route: 048
     Dates: start: 20111001

REACTIONS (2)
  - PANCYTOPENIA [None]
  - NEUTROPENIA [None]
